FAERS Safety Report 11893859 (Version 1)
Quarter: 2016Q1

REPORT INFORMATION
  Report Type: Report from Study
  Country: CA (occurrence: CA)
  Receive Date: 20160107
  Receipt Date: 20160107
  Transmission Date: 20160526
  Serious: Yes (Hospitalization, Other)
  Sender: FDA-Public Use
  Company Number: PHHY2016CA000813

PATIENT
  Age: 51 Year
  Sex: Female

DRUGS (2)
  1. SANDOSTATIN LAR DEPOT [Suspect]
     Active Substance: OCTREOTIDE ACETATE
     Indication: PANCREATIC FISTULA
     Dosage: 20 MG, QMO
     Route: 030
     Dates: start: 20151105
  2. SANDOSTATIN [Suspect]
     Active Substance: OCTREOTIDE ACETATE
     Indication: PANCREATIC FISTULA
     Dosage: 200 UG, TID
     Route: 048
     Dates: start: 20151016

REACTIONS (2)
  - Type 1 diabetes mellitus [Unknown]
  - Product use issue [Unknown]

NARRATIVE: CASE EVENT DATE: 20151016
